FAERS Safety Report 5069685-3 (Version None)
Quarter: 2006Q3

REPORT INFORMATION
  Report Type: 
  Country: None (occurrence: None)
  Receive Date: 20060802
  Receipt Date: 20060802
  Transmission Date: 20061208
  Serious: Yes (Hospitalization)
  Sender: FDA-Public Use
  Company Number: None

PATIENT
  Age: 68 Year
  Sex: Male
  Weight: 58.6 kg

DRUGS (1)
  1. LISINOPRIL AND HYDROCHLOROTHIAZIDE [Suspect]
     Indication: HYPERTENSION
     Dosage: 20/12.5 MG   DAILY   PO
     Route: 048
     Dates: start: 20040701, end: 20060705

REACTIONS (4)
  - ANGIONEUROTIC OEDEMA [None]
  - GINGIVAL SWELLING [None]
  - OEDEMA PERIPHERAL [None]
  - SWELLING FACE [None]
